FAERS Safety Report 15109649 (Version 1)
Quarter: 2018Q3

REPORT INFORMATION
  Report Type: Spontaneous
  Country: AU (occurrence: AU)
  Receive Date: 20180705
  Receipt Date: 20180705
  Transmission Date: 20181010
  Serious: Yes (Other)
  Sender: FDA-Public Use
  Company Number: PHHY2018AU031451

PATIENT
  Age: 54 Year
  Sex: Female

DRUGS (5)
  1. FLUDARABINE [Suspect]
     Active Substance: FLUDARABINE PHOSPHATE
     Indication: T-CELL TYPE ACUTE LEUKAEMIA
     Dosage: UNK
     Route: 065
  2. HYPER CVAD [Suspect]
     Active Substance: CYCLOPHOSPHAMIDE\CYTARABINE\DEXAMETHASONE\DOXORUBICIN\METHOTREXATE\VINCRISTINE
     Indication: T-CELL TYPE ACUTE LEUKAEMIA
     Route: 065
  3. NELARABINE [Suspect]
     Active Substance: NELARABINE
     Indication: T-CELL TYPE ACUTE LEUKAEMIA
     Dosage: UNK UNK, CYCLIC
     Route: 065
  4. METHOTREXATE. [Suspect]
     Active Substance: METHOTREXATE
     Indication: T-CELL TYPE ACUTE LEUKAEMIA
     Dosage: UNK
     Route: 065
  5. IDARUBICIN [Suspect]
     Active Substance: IDARUBICIN
     Indication: T-CELL TYPE ACUTE LEUKAEMIA
     Dosage: UNK
     Route: 065

REACTIONS (4)
  - Leukaemia recurrent [Unknown]
  - Acute lymphocytic leukaemia refractory [Unknown]
  - Minimal residual disease [Unknown]
  - Lymphadenopathy [Unknown]

NARRATIVE: CASE EVENT DATE: 201712
